APPROVED DRUG PRODUCT: FOSPHENYTOIN SODIUM
Active Ingredient: FOSPHENYTOIN SODIUM
Strength: EQ 50MG PHENYTOIN NA/ML
Dosage Form/Route: INJECTABLE;INJECTION
Application: A078476 | Product #001
Applicant: AMNEAL EU LTD
Approved: Mar 18, 2008 | RLD: No | RS: No | Type: DISCN